FAERS Safety Report 11680699 (Version 3)
Quarter: 2015Q4

REPORT INFORMATION
  Report Type: Spontaneous
  Country: US (occurrence: US)
  Receive Date: 20151027
  Receipt Date: 20151110
  Transmission Date: 20160304
  Serious: Yes (Other)
  Sender: FDA-Public Use
  Company Number: US-ELI_LILLY_AND_COMPANY-US201011004544

PATIENT
  Age: 56 Year
  Sex: Female
  Weight: 71.2 kg

DRUGS (5)
  1. FORTEO [Suspect]
     Active Substance: TERIPARATIDE
     Indication: OSTEOPOROSIS
     Dosage: 20 UG, QD
     Route: 058
     Dates: start: 2010
  2. CALCIUM [Concomitant]
     Active Substance: CALCIUM
     Dosage: UNK
  3. FORTEO [Suspect]
     Active Substance: TERIPARATIDE
     Dosage: 20 UG, QD
     Route: 058
  4. FORTEO [Suspect]
     Active Substance: TERIPARATIDE
     Dosage: 20 UG, QD
     Route: 058
  5. FORTEO [Suspect]
     Active Substance: TERIPARATIDE
     Dosage: 20 UG, QD
     Route: 058

REACTIONS (19)
  - Irritability [Unknown]
  - Faecal volume decreased [Unknown]
  - White blood cell count decreased [Unknown]
  - Injection site macule [Unknown]
  - Injection site bruising [Not Recovered/Not Resolved]
  - Eye swelling [Unknown]
  - Arthralgia [Unknown]
  - Blood potassium increased [Unknown]
  - Constipation [Recovering/Resolving]
  - Hypersensitivity [Unknown]
  - Abdominal distension [Unknown]
  - Infrequent bowel movements [Unknown]
  - Ocular hyperaemia [Unknown]
  - Head injury [Unknown]
  - Pain in extremity [Unknown]
  - Blood calcium increased [Unknown]
  - Sleep disorder due to a general medical condition [Unknown]
  - Fall [Recovered/Resolved]
  - Myalgia [Unknown]

NARRATIVE: CASE EVENT DATE: 2010
